FAERS Safety Report 7397390-7 (Version None)
Quarter: 2011Q2

REPORT INFORMATION
  Report Type: 
  Country: None (occurrence: None)
  Receive Date: 20110406
  Receipt Date: 20110328
  Transmission Date: 20111010
  Serious: Yes (Other)
  Sender: FDA-Public Use
  Company Number: CN-ROCHE-767956

PATIENT
  Age: 47 Year
  Sex: Male

DRUGS (1)
  1. PEGINTERFERON ALFA-2A [Suspect]
     Route: 058
     Dates: start: 20100301, end: 20100601

REACTIONS (1)
  - DEMYELINATING POLYNEUROPATHY [None]
